FAERS Safety Report 6604889-7 (Version None)
Quarter: 2010Q1

REPORT INFORMATION
  Report Type: 
  Country: None (occurrence: None)
  Receive Date: 20100226
  Receipt Date: 20100217
  Transmission Date: 20100710
  Serious: Yes (Other)
  Sender: FDA-Public Use
  Company Number: B0630756A

PATIENT
  Sex: Male

DRUGS (4)
  1. ATRIANCE [Suspect]
     Dosage: 1500MGM2 PER DAY
     Route: 065
     Dates: start: 20090727, end: 20090731
  2. ATRIANCE [Suspect]
     Dosage: 1500MGM PER DAY
     Route: 065
     Dates: start: 20090914, end: 20090918
  3. ATRIANCE [Suspect]
     Dosage: 1500MGM PER DAY
     Route: 065
     Dates: start: 20091016, end: 20091021
  4. ATRIANCE [Suspect]
     Dosage: 1500MGM2 PER DAY
     Route: 065
     Dates: start: 20091113, end: 20091120

REACTIONS (10)
  - DEPRESSION [None]
  - GAIT DISTURBANCE [None]
  - GENERAL PHYSICAL HEALTH DETERIORATION [None]
  - HEADACHE [None]
  - HYPOACUSIS [None]
  - HYPOREFLEXIA [None]
  - PAIN IN EXTREMITY [None]
  - POLYNEUROPATHY [None]
  - VERTIGO [None]
  - VESTIBULAR DISORDER [None]
